FAERS Safety Report 18973401 (Version 1)
Quarter: 2021Q1

REPORT INFORMATION
  Report Type: Spontaneous
  Country: US (occurrence: US)
  Receive Date: 20210304
  Receipt Date: 20210304
  Transmission Date: 20210420
  Serious: Yes (Other)
  Sender: FDA-Public Use
  Company Number: None

PATIENT

DRUGS (2)
  1. ARC/WHITENING SYSTEMS/STRIPS + LIGHT [Suspect]
     Active Substance: HYDROGEN PEROXIDE
  2. WHITESTRIP 3D WHITE NO FLAVOR?SCENT 8CT [Suspect]
     Active Substance: HYDROGEN PEROXIDE

REACTIONS (2)
  - Tooth fracture [None]
  - Toothache [None]
